FAERS Safety Report 14508718 (Version 5)
Quarter: 2019Q1

REPORT INFORMATION
  Report Type: Spontaneous
  Country: US (occurrence: US)
  Receive Date: 20180209
  Receipt Date: 20190327
  Transmission Date: 20190417
  Serious: No
  Sender: FDA-Public Use
  Company Number: US-ASTRAZENECA-2018SE15501

PATIENT
  Sex: Male

DRUGS (3)
  1. BYDUREON [Suspect]
     Active Substance: EXENATIDE
     Route: 065
  2. BYDUREON [Suspect]
     Active Substance: EXENATIDE
     Route: 065
     Dates: end: 2018
  3. BYDUREON BCISE [Suspect]
     Active Substance: EXENATIDE
     Dosage: 2.0MG UNKNOWN
     Route: 065

REACTIONS (14)
  - Visual acuity reduced [Unknown]
  - Underdose [Unknown]
  - Intentional product misuse [Unknown]
  - Memory impairment [Recovering/Resolving]
  - Road traffic accident [Unknown]
  - Device leakage [Unknown]
  - Concussion [Recovered/Resolved]
  - Therapy cessation [Unknown]
  - Incorrect dose administered by device [Unknown]
  - Gait disturbance [Recovered/Resolved]
  - Fall [Unknown]
  - Glycosylated haemoglobin increased [Unknown]
  - Contusion [Unknown]
  - Device malfunction [Unknown]

NARRATIVE: CASE EVENT DATE: 201804
